FAERS Safety Report 4585470-0 (Version None)
Quarter: 2005Q1

REPORT INFORMATION
  Report Type: 
  Country: None (occurrence: None)
  Receive Date: 20050215
  Receipt Date: 20050215
  Transmission Date: 20050727
  Serious: Yes (Other)
  Sender: FDA-Public Use
  Company Number: None

PATIENT
  Age: 75 Year
  Sex: Male
  Weight: 70.3075 kg

DRUGS (20)
  1. FENTANYL [Suspect]
     Indication: RHEUMATOID ARTHRITIS
     Dosage: 25 MCG/HR    X1 PATCH
     Dates: start: 20050212
  2. ENBREL [Suspect]
     Indication: ANKYLOSING SPONDYLITIS
     Dates: start: 20040101
  3. PREDNISONE [Concomitant]
  4. GLYBURIDE [Concomitant]
  5. HYDROCHLOROTHIAZIDE [Concomitant]
  6. OXYCODONE [Concomitant]
  7. PROCHLORPERAZINE [Concomitant]
  8. BISACODYL [Concomitant]
  9. PLAVIX [Concomitant]
  10. COLCHICINE [Concomitant]
  11. TAMSULOSIN [Concomitant]
  12. QUININE SULFATE [Concomitant]
  13. NEXIUM [Concomitant]
  14. CALCIUM GLUCONATE [Concomitant]
  15. MAGNESIUM [Concomitant]
  16. ZINC [Concomitant]
  17. MSM [Concomitant]
  18. FLAX SEED OIL [Concomitant]
  19. GLUCOSAMINE SULFATE [Concomitant]
  20. MULTIVITAMIN WITH MINERAL [Concomitant]

REACTIONS (6)
  - DIPLOPIA [None]
  - MEDICATION ERROR [None]
  - MIGRAINE [None]
  - NAUSEA [None]
  - RASH PRURITIC [None]
  - VOMITING [None]
